FAERS Safety Report 9315885 (Version 3)
Quarter: 2014Q1

REPORT INFORMATION
  Report Type: Report from Study
  Country: HU (occurrence: HU)
  Receive Date: 20130530
  Receipt Date: 20140227
  Transmission Date: 20141002
  Serious: Yes (Other)
  Sender: FDA-Public Use
  Company Number: HU-ROCHE-1229339

PATIENT
  Sex: Female

DRUGS (3)
  1. RITUXIMAB [Suspect]
     Indication: RHEUMATOID ARTHRITIS
     Dosage: ON DAY 1 AND 15.
     Route: 065
  2. METHYLPREDNISOLONE [Concomitant]
     Route: 042
  3. METHYLPREDNISOLONE [Concomitant]
     Dosage: DOSE: 15-25 MG
     Route: 042

REACTIONS (1)
  - Cervical dysplasia [Unknown]
